FAERS Safety Report 12225868 (Version 2)
Quarter: 2016Q2

REPORT INFORMATION
  Report Type: Spontaneous
  Country: PK (occurrence: PK)
  Receive Date: 20160331
  Receipt Date: 20160502
  Transmission Date: 20160815
  Serious: Yes (Life-Threatening)
  Sender: FDA-Public Use
  Company Number: PK-HOSPIRA-3233579

PATIENT
  Sex: Female

DRUGS (1)
  1. ABOCAIN SPINAL [Suspect]
     Active Substance: BUPIVACAINE
     Indication: SPINAL ANAESTHESIA
     Dosage: ONCE
     Route: 037
     Dates: start: 20160314, end: 20160314

REACTIONS (2)
  - Hypotension [Recovered/Resolved]
  - Product quality issue [Unknown]

NARRATIVE: CASE EVENT DATE: 20160314
